FAERS Safety Report 6500907-5 (Version None)
Quarter: 2009Q4

REPORT INFORMATION
  Report Type: 
  Country: None (occurrence: None)
  Receive Date: 20091216
  Receipt Date: 20090414
  Transmission Date: 20100525
  Serious: No
  Sender: FDA-Public Use
  Company Number: A0778707A

PATIENT
  Age: 54 Year
  Sex: Female

DRUGS (1)
  1. NICOTINE POLACRILEX [Suspect]
     Indication: SMOKING CESSATION THERAPY
     Dates: start: 20090413, end: 20090413

REACTIONS (2)
  - RETCHING [None]
  - VOMITING [None]
